FAERS Safety Report 15433888 (Version 1)
Quarter: 2018Q3

REPORT INFORMATION
  Report Type: Spontaneous
  Country: US (occurrence: US)
  Receive Date: 20180921
  Receipt Date: 20180921
  Transmission Date: 20181010
  Serious: No
  Sender: FDA-Public Use
  Company Number: None

PATIENT
  Age: 33 Year
  Sex: Male

DRUGS (1)
  1. TEMOZOLOMIDE  100MG CAP [Suspect]
     Active Substance: TEMOZOLOMIDE
     Dates: start: 20180905

REACTIONS (1)
  - Headache [None]

NARRATIVE: CASE EVENT DATE: 20180920
